FAERS Safety Report 6157676-0 (Version None)
Quarter: 2009Q2

REPORT INFORMATION
  Report Type: 
  Country: None (occurrence: None)
  Receive Date: 20090416
  Receipt Date: 20090402
  Transmission Date: 20091009
  Serious: Yes (Death)
  Sender: FDA-Public Use
  Company Number: ES-GENENTECH-280833

PATIENT
  Sex: Female

DRUGS (3)
  1. BEVACIZUMAB [Suspect]
     Indication: COLORECTAL CANCER
     Dosage: 525 MG, Q21D
     Route: 042
     Dates: start: 20080618, end: 20081001
  2. CAPECITABINE [Suspect]
     Indication: COLORECTAL CANCER
     Dosage: 1300 MG, UNK
     Route: 048
     Dates: start: 20080618, end: 20081015
  3. OXALIPLATIN [Suspect]
     Indication: COLORECTAL CANCER
     Dosage: 220 MG, Q21D
     Route: 042
     Dates: start: 20080618, end: 20081001

REACTIONS (1)
  - PNEUMOPERITONEUM [None]
